FAERS Safety Report 25201121 (Version 7)
Quarter: 2025Q2

REPORT INFORMATION
  Report Type: Report from Study
  Country: CO (occurrence: CO)
  Receive Date: 20250416
  Receipt Date: 20250529
  Transmission Date: 20250717
  Serious: Yes (Hospitalization, Other)
  Sender: NOVARTIS
  Company Number: CO-002147023-NVSC2025CO053456

PATIENT
  Age: 56 Year
  Sex: Female
  Weight: 92 kg

DRUGS (9)
  1. KISQALI [Suspect]
     Active Substance: RIBOCICLIB SUCCINATE
     Indication: Breast cancer metastatic
     Dosage: 600 MG, QD
     Route: 048
     Dates: start: 20230115, end: 20250327
  2. KISQALI [Suspect]
     Active Substance: RIBOCICLIB SUCCINATE
     Indication: Hormone receptor positive HER2 negative breast cancer
     Dosage: 600 MG, QD
     Route: 048
  3. KISQALI [Suspect]
     Active Substance: RIBOCICLIB SUCCINATE
     Dosage: 600 MG, QD (STOP DATE 10 MAR)
     Route: 048
  4. KISQALI [Suspect]
     Active Substance: RIBOCICLIB SUCCINATE
     Dosage: 600 MG, QD (START DATE 9 APR)
     Route: 048
  5. KISQALI [Suspect]
     Active Substance: RIBOCICLIB SUCCINATE
     Route: 065
  6. KISQALI [Suspect]
     Active Substance: RIBOCICLIB SUCCINATE
     Dosage: 600 MG, QD
     Route: 048
     Dates: start: 202301
  7. LETROZOLE [Suspect]
     Active Substance: LETROZOLE
     Indication: Breast cancer metastatic
     Dosage: 2.5 MG, QD
     Route: 048
  8. VITAMIN C [Concomitant]
     Active Substance: ASCORBIC ACID
     Indication: Product used for unknown indication
     Route: 065
     Dates: start: 20250517
  9. VITAMINS [Concomitant]
     Active Substance: VITAMINS
     Indication: Product used for unknown indication
     Route: 065
     Dates: start: 20250517

REACTIONS (12)
  - Disseminated tuberculosis [Unknown]
  - Abdominal pain upper [Recovering/Resolving]
  - Tuberculous pleurisy [Recovered/Resolved]
  - Tuberculosis [Unknown]
  - Abdominal discomfort [Recovering/Resolving]
  - Gastritis [Unknown]
  - Fatigue [Recovered/Resolved]
  - Weight decreased [Recovered/Resolved]
  - Abdominal pain [Recovered/Resolved]
  - Depressed mood [Recovered/Resolved]
  - Chest pain [Recovered/Resolved]
  - Mobility decreased [Not Recovered/Not Resolved]

NARRATIVE: CASE EVENT DATE: 20250301
